FAERS Safety Report 7764788-4 (Version None)
Quarter: 2011Q3

REPORT INFORMATION
  Report Type: 
  Country: None (occurrence: None)
  Receive Date: 20110921
  Receipt Date: 20110921
  Transmission Date: 20111222
  Serious: No
  Sender: FDA-Public Use
  Company Number: None

PATIENT
  Age: 54 Year
  Sex: Male
  Weight: 99.79 kg

DRUGS (2)
  1. AMLODIPINE [Suspect]
  2. SIMVASTATIN [Concomitant]

REACTIONS (2)
  - TREMOR [None]
  - MUSCLE SPASMS [None]
